FAERS Safety Report 5498078-X (Version None)
Quarter: 2007Q4

REPORT INFORMATION
  Report Type: 
  Country: None (occurrence: None)
  Receive Date: 20071018
  Receipt Date: 20070731
  Transmission Date: 20080405
  Serious: Yes (Hospitalization, Other)
  Sender: FDA-Public Use
  Company Number: 2007064474

PATIENT
  Sex: Male

DRUGS (1)
  1. NEURONTIN [Suspect]

REACTIONS (3)
  - FATIGUE [None]
  - MALAISE [None]
  - PULMONARY OEDEMA [None]
